FAERS Safety Report 23145409 (Version 1)
Quarter: 2023Q4

REPORT INFORMATION
  Report Type: Spontaneous
  Country: CN (occurrence: None)
  Receive Date: 20231103
  Receipt Date: 20231103
  Transmission Date: 20240109
  Serious: Yes (Other)
  Sender: FDA-Public Use
  Company Number: 2023A248496

PATIENT
  Age: 75 Year
  Sex: Female

DRUGS (4)
  1. IRESSA [Suspect]
     Active Substance: GEFITINIB
     Indication: Lung adenocarcinoma stage II
     Route: 048
     Dates: start: 201703
  2. OSIMERTINIB [Suspect]
     Active Substance: OSIMERTINIB
     Indication: Lung adenocarcinoma stage II
     Route: 048
     Dates: start: 202004
  3. BEVACIZUMAB [Suspect]
     Active Substance: BEVACIZUMAB
     Indication: Lung adenocarcinoma stage II
  4. PEMETREXED [Concomitant]
     Active Substance: PEMETREXED
     Indication: Lung adenocarcinoma stage II

REACTIONS (5)
  - Malignant neoplasm progression [Recovered/Resolved]
  - Neoplasm progression [Recovered/Resolved]
  - Drug resistance [Unknown]
  - Mucosal dryness [Unknown]
  - Rash [Unknown]

NARRATIVE: CASE EVENT DATE: 20181201
